FAERS Safety Report 5131226-X (Version None)
Quarter: 2006Q4

REPORT INFORMATION
  Report Type: 
  Country: None (occurrence: None)
  Receive Date: 20061017
  Receipt Date: 20061017
  Transmission Date: 20070319
  Serious: Yes (Death)
  Sender: FDA-Public Use
  Company Number: None

PATIENT
  Age: 49 Year
  Sex: Female
  Weight: 73 kg

DRUGS (1)
  1. MEPERIDINE HCL [Suspect]
     Indication: PAIN
     Dosage: 75MG IV BOLUS
     Route: 040
     Dates: start: 20060814, end: 20060814

REACTIONS (2)
  - RESPIRATORY FAILURE [None]
  - SEROTONIN SYNDROME [None]
